FAERS Safety Report 13815392 (Version 4)
Quarter: 2019Q2

REPORT INFORMATION
  Report Type: Spontaneous
  Country: US (occurrence: US)
  Receive Date: 20170731
  Receipt Date: 20190607
  Transmission Date: 20190711
  Serious: Yes (Life-Threatening, Hospitalization, Other)
  Sender: FDA-Public Use
  Company Number: US-EMD SERONO-7027539

PATIENT
  Age: 62 Year
  Sex: Female
  Weight: 86 kg

DRUGS (14)
  1. REBIF [Suspect]
     Active Substance: INTERFERON BETA-1A
     Route: 058
     Dates: start: 20101122
  2. PREDNISONE. [Suspect]
     Active Substance: PREDNISONE
     Indication: PREMEDICATION
     Dosage: SHE WAS RECENTLY ON A PREDNISONE TAPER FOR BURSITIS IN HER LEFT SHOULDER.
  3. PREDNISONE. [Suspect]
     Active Substance: PREDNISONE
     Indication: MULTIPLE SCLEROSIS RELAPSE
  4. LEXAPRO [Concomitant]
     Active Substance: ESCITALOPRAM OXALATE
     Indication: ANXIETY
     Dates: start: 2006
  5. KLONOPIN [Concomitant]
     Active Substance: CLONAZEPAM
     Indication: DEPRESSION
  6. REBIF [Suspect]
     Active Substance: INTERFERON BETA-1A
     Indication: MULTIPLE SCLEROSIS
     Dosage: PREFILLED SYRINGE
     Route: 058
     Dates: start: 20060705, end: 20101110
  7. LEXAPRO [Concomitant]
     Active Substance: ESCITALOPRAM OXALATE
     Indication: DEPRESSION
  8. KLONOPIN [Concomitant]
     Active Substance: CLONAZEPAM
     Indication: ANXIETY
     Dates: start: 2006
  9. ATENOLOL. [Concomitant]
     Active Substance: ATENOLOL
     Indication: PALPITATIONS
  10. REBIF [Suspect]
     Active Substance: INTERFERON BETA-1A
     Route: 058
  11. IBUPROFEN. [Concomitant]
     Active Substance: IBUPROFEN
     Indication: PREMEDICATION
  12. VITAMIN D2 + CALCIUM               /07511201/ [Concomitant]
     Indication: ARTHRALGIA
     Dates: start: 2008
  13. ATENOLOL. [Concomitant]
     Active Substance: ATENOLOL
     Indication: HEART RATE IRREGULAR
  14. PREDNISONE. [Suspect]
     Active Substance: PREDNISONE
     Indication: BURSITIS

REACTIONS (44)
  - Diarrhoea [Recovered/Resolved]
  - Sciatica [Not Recovered/Not Resolved]
  - Oedema peripheral [Not Recovered/Not Resolved]
  - High density lipoprotein decreased [Not Recovered/Not Resolved]
  - Vitamin B12 decreased [Unknown]
  - Malaise [Unknown]
  - Pain [Not Recovered/Not Resolved]
  - Dermatitis allergic [Unknown]
  - Viral infection [Recovered/Resolved]
  - Joint swelling [Not Recovered/Not Resolved]
  - Vitamin D decreased [Unknown]
  - Hypothyroidism [Not Recovered/Not Resolved]
  - Injection site bruising [Unknown]
  - Injection site pain [Not Recovered/Not Resolved]
  - Injection site pruritus [Not Recovered/Not Resolved]
  - Abdominal hernia [Recovering/Resolving]
  - Blood triglycerides increased [Unknown]
  - Injection site erythema [Not Recovered/Not Resolved]
  - Back injury [Not Recovered/Not Resolved]
  - Feeling hot [Unknown]
  - Retching [Not Recovered/Not Resolved]
  - Fatigue [Unknown]
  - Social avoidant behaviour [Unknown]
  - Peritonitis [Recovered/Resolved]
  - Fall [Unknown]
  - Vitamin B12 increased [Recovered/Resolved]
  - Yellow skin [Recovered/Resolved]
  - Bursitis [Unknown]
  - Haematochezia [Unknown]
  - Anorectal discomfort [Not Recovered/Not Resolved]
  - Procedural pain [Not Recovered/Not Resolved]
  - Injection site swelling [Unknown]
  - Depression [Unknown]
  - Weight decreased [Unknown]
  - Urinary tract infection [Recovered/Resolved]
  - Scar [Recovered/Resolved]
  - Appendicitis perforated [Recovered/Resolved]
  - Postoperative wound infection [Recovered/Resolved]
  - Blood cholesterol increased [Unknown]
  - Influenza like illness [Recovering/Resolving]
  - Muscular weakness [Unknown]
  - Band sensation [Unknown]
  - Stress [Unknown]
  - Hyperhidrosis [Unknown]

NARRATIVE: CASE EVENT DATE: 2010
